FAERS Safety Report 21371594 (Version 2)
Quarter: 2023Q1

REPORT INFORMATION
  Report Type: Spontaneous
  Country: US (occurrence: US)
  Receive Date: 20220923
  Receipt Date: 20230215
  Transmission Date: 20230418
  Serious: No
  Sender: FDA-Public Use
  Company Number: US-PFIZER INC-202201183048

PATIENT
  Age: 61 Year
  Sex: Female

DRUGS (1)
  1. IBRANCE [Suspect]
     Active Substance: PALBOCICLIB
     Dosage: 125 MG, 1X/DAY, (1 A DAY FOR TWO WEEKS AND ^REST^ FOR ONE WEEK)

REACTIONS (2)
  - Weight decreased [Unknown]
  - Product prescribing issue [Unknown]
